FAERS Safety Report 15156490 (Version 1)
Quarter: 2018Q3

REPORT INFORMATION
  Report Type: Spontaneous
  Country: CA (occurrence: CA)
  Receive Date: 20180717
  Receipt Date: 20180717
  Transmission Date: 20181010
  Serious: Yes (Hospitalization)
  Sender: FDA-Public Use
  Company Number: CA-TEVA-2018-CA-924441

PATIENT
  Age: 50 Year
  Sex: Female
  Weight: 66 kg

DRUGS (7)
  1. ALLOPURINOL. [Suspect]
     Active Substance: ALLOPURINOL
     Indication: GOUT
     Route: 048
  2. VALSARTAN. [Concomitant]
     Active Substance: VALSARTAN
  3. LISPRO 50LIS50NPL [Concomitant]
  4. CHOLESTYRAMINE. [Concomitant]
     Active Substance: CHOLESTYRAMINE
  5. DIPHENHYDRAMINE. [Concomitant]
     Active Substance: DIPHENHYDRAMINE
  6. HYDROXYZINE [Concomitant]
     Active Substance: HYDROXYZINE HYDROCHLORIDE
  7. AZITHROMYCIN ANHYDROUS. [Suspect]
     Active Substance: AZITHROMYCIN ANHYDROUS
     Indication: UPPER RESPIRATORY TRACT INFECTION
     Route: 048

REACTIONS (4)
  - Transaminases increased [Unknown]
  - Acute generalised exanthematous pustulosis [Unknown]
  - Drug hypersensitivity [Unknown]
  - Blood bilirubin increased [Unknown]
